FAERS Safety Report 9992991 (Version 2)
Quarter: 2014Q1

REPORT INFORMATION
  Report Type: Report from Study
  Country: US (occurrence: US)
  Receive Date: 20140310
  Receipt Date: 20140310
  Transmission Date: 20141002
  Serious: No
  Sender: FDA-Public Use
  Company Number: US-ABBVIE-13P-163-1125007-00

PATIENT
  Age: 22 Year
  Sex: Female

DRUGS (6)
  1. LUPRON DEPOT [Suspect]
     Indication: ENDOMETRIOSIS
     Dates: start: 20130610
  2. GENERESS FE [Concomitant]
     Indication: PRODUCT USED FOR UNKNOWN INDICATION
     Dosage: PILL `
     Route: 048
  3. ZYRTEC [Concomitant]
     Indication: PRODUCT USED FOR UNKNOWN INDICATION
  4. AMLODIPINE [Concomitant]
     Indication: PRODUCT USED FOR UNKNOWN INDICATION
     Route: 048
  5. BACLOFEN [Concomitant]
     Indication: PRODUCT USED FOR UNKNOWN INDICATION
  6. NORETHINDRONE ACETATE GLENMARK [Concomitant]
     Indication: PRODUCT USED FOR UNKNOWN INDICATION
     Route: 048

REACTIONS (9)
  - Metrorrhagia [Recovered/Resolved]
  - Rash erythematous [Not Recovered/Not Resolved]
  - Night sweats [Recovering/Resolving]
  - Hot flush [Recovering/Resolving]
  - Rash generalised [Recovered/Resolved]
  - Pelvic pain [Recovering/Resolving]
  - Dyspareunia [Recovered/Resolved]
  - Abdominal rigidity [Recovering/Resolving]
  - Endometriosis [Not Recovered/Not Resolved]
